FAERS Safety Report 9269671 (Version 1)
Quarter: 2013Q2

REPORT INFORMATION
  Report Type: Spontaneous
  Country: US (occurrence: US)
  Receive Date: 20130503
  Receipt Date: 20130503
  Transmission Date: 20140414
  Serious: Yes (Hospitalization)
  Sender: FDA-Public Use
  Company Number: US-BAYER-2013-053996

PATIENT
  Age: 36 Year
  Sex: Female

DRUGS (7)
  1. YAZ [Suspect]
  2. OXYCODONE [Concomitant]
  3. WELLBUTRIN [Concomitant]
  4. RANITIDINE [Concomitant]
  5. LEXAPRO [Concomitant]
  6. ZANAFLEX [Concomitant]
  7. IBUPROFEN [Concomitant]

REACTIONS (2)
  - Pulmonary embolism [Recovered/Resolved]
  - Deep vein thrombosis [None]
